FAERS Safety Report 6873257-5 (Version None)
Quarter: 2010Q3

REPORT INFORMATION
  Report Type: 
  Country: None (occurrence: None)
  Receive Date: 20100723
  Receipt Date: 20090102
  Transmission Date: 20110219
  Serious: No
  Sender: FDA-Public Use
  Company Number: US-PFIZER INC-2009150939

PATIENT
  Age: 22 Year
  Sex: Male

DRUGS (2)
  1. CHANTIX [Suspect]
     Indication: SMOKING CESSATION THERAPY
     Dosage: 0.5 MG, 2X/DAY
     Dates: start: 20080101
  2. DRUG, UNSPECIFIED [Concomitant]
     Indication: MEDICAL DIET
     Dosage: UNK

REACTIONS (2)
  - ANXIETY [None]
  - BLOOD CHOLESTEROL INCREASED [None]
